FAERS Safety Report 13115588 (Version 3)
Quarter: 2017Q1

REPORT INFORMATION
  Report Type: Spontaneous
  Country: JP (occurrence: JP)
  Receive Date: 20170114
  Receipt Date: 20170209
  Transmission Date: 20170428
  Serious: Yes (Hospitalization, Other)
  Sender: FDA-Public Use
  Company Number: JP-AMGEN-JPNSP2017006170

PATIENT
  Age: 65 Year
  Sex: Male
  Weight: 55.8 kg

DRUGS (10)
  1. VECTIBIX [Suspect]
     Active Substance: PANITUMUMAB
     Indication: COLON CANCER
     Dosage: 320 MG, Q2WEEKS
     Route: 041
     Dates: start: 20161213, end: 20161227
  2. CALCIUM LEVOFOLINATE [Concomitant]
     Active Substance: LEVOLEUCOVORIN CALCIUM
     Dosage: 300 MG, Q2WEEKS
     Route: 041
     Dates: start: 20170112
  3. 5-FU [Concomitant]
     Active Substance: FLUOROURACIL
     Indication: COLON CANCER
     Dosage: 600 MG, Q2WK
     Route: 040
     Dates: start: 20161213, end: 20161227
  4. ELPLAT [Concomitant]
     Active Substance: OXALIPLATIN
     Indication: COLON CANCER
     Dosage: 130 MG, Q2WEEKS
     Route: 041
     Dates: start: 20161213, end: 20161227
  5. 5-FU [Concomitant]
     Active Substance: FLUOROURACIL
     Dosage: 3750 MG, Q2WEEKS
     Route: 041
     Dates: start: 20161213, end: 20161227
  6. 5-FU [Concomitant]
     Active Substance: FLUOROURACIL
     Dosage: 3750 MG, Q2WEEKS
     Route: 041
     Dates: start: 20170112
  7. 5-FU [Concomitant]
     Active Substance: FLUOROURACIL
     Dosage: 600 MG, Q2WK
     Route: 040
     Dates: start: 20170112
  8. ELPLAT [Concomitant]
     Active Substance: OXALIPLATIN
     Dosage: 130 MG, Q2WEEKS
     Route: 041
     Dates: start: 20170112
  9. VECTIBIX [Suspect]
     Active Substance: PANITUMUMAB
     Dosage: 320 MG, Q2WEEKS
     Route: 041
     Dates: start: 20170112
  10. CALCIUM LEVOFOLINATE [Concomitant]
     Active Substance: LEVOLEUCOVORIN CALCIUM
     Indication: COLON CANCER
     Dosage: 300 MG, Q2WEEKS
     Route: 041
     Dates: start: 20161213, end: 20161227

REACTIONS (2)
  - Subarachnoid haemorrhage [Not Recovered/Not Resolved]
  - Subarachnoid haemorrhage [Unknown]

NARRATIVE: CASE EVENT DATE: 20161228
